FAERS Safety Report 5300668-1 (Version None)
Quarter: 2007Q2

REPORT INFORMATION
  Report Type: 
  Country: None (occurrence: None)
  Receive Date: 20070418
  Receipt Date: 20070412
  Transmission Date: 20071010
  Serious: Yes (Hospitalization)
  Sender: FDA-Public Use
  Company Number: CA-AVENTIS-200713261GDDC

PATIENT
  Age: 49 Year
  Sex: Male

DRUGS (4)
  1. TAXOTERE [Suspect]
     Indication: PROSTATE CANCER
     Route: 042
     Dates: start: 20061106, end: 20061106
  2. STEMETIL                           /00013301/ [Concomitant]
     Indication: NAUSEA
     Dosage: DOSE: 10 MG EVERY 6 HOURS
     Route: 048
  3. PREDNISONE TAB [Concomitant]
     Route: 048
  4. DECADRON [Concomitant]
     Dosage: DOSE: 2 MG FOR 1 WEEK THEN 1 MG FOR 2 WEEKS
     Route: 048
     Dates: start: 20061107

REACTIONS (8)
  - ACUTE RESPIRATORY DISTRESS SYNDROME [None]
  - CHILLS [None]
  - DYSPNOEA [None]
  - HYPOTHERMIA [None]
  - LUNG INFILTRATION [None]
  - NAUSEA [None]
  - NEUTROPHIL COUNT DECREASED [None]
  - WHITE BLOOD CELL COUNT DECREASED [None]
